FAERS Safety Report 4977017-1 (Version None)
Quarter: 2006Q2

REPORT INFORMATION
  Report Type: 
  Country: None (occurrence: None)
  Receive Date: 20060413
  Receipt Date: 20060405
  Transmission Date: 20061013
  Serious: Yes (Hospitalization)
  Sender: FDA-Public Use
  Company Number: HQWYE690407APR06

PATIENT
  Age: 55 Year
  Sex: Female
  Weight: 81.2 kg

DRUGS (16)
  1. RAPAMUNE [Suspect]
     Indication: PROPHYLAXIS AGAINST TRANSPLANT REJECTION
     Dosage: 2 MG/1 MG EVERY OTHER DAY,
     Dates: start: 20040330, end: 20060402
  2. RAPAMUNE [Suspect]
     Indication: PROPHYLAXIS AGAINST TRANSPLANT REJECTION
     Dosage: 2 MG/1 MG EVERY OTHER DAY,
     Dates: start: 20060404
  3. RAPAMUNE [Suspect]
  4. CELLCEPT [Concomitant]
  5. PREDNISONE TAB [Concomitant]
  6. AMLODIPINE BESYLATE [Concomitant]
  7. TENORMIN [Concomitant]
  8. LASIX [Concomitant]
  9. LASIX [Concomitant]
  10. PREVACID [Concomitant]
  11. FOSAMAX [Concomitant]
  12. CALCIUM CARBONATE (CALCIUM CARBONATE) [Concomitant]
  13. POTASSIUM CHLORIDE [Concomitant]
  14. ASPIRIN [Concomitant]
  15. MULTIVITAMINS (ASCORBIC ACID/ERGOCALCIFEROL/FOLIC ACID/NICOTINAMIDE/PA [Concomitant]
  16. OXYCODONE (OXYCODONE) [Concomitant]

REACTIONS (6)
  - ASPARTATE AMINOTRANSFERASE INCREASED [None]
  - BLOOD ALKALINE PHOSPHATASE INCREASED [None]
  - NAUSEA [None]
  - TRANSPLANT REJECTION [None]
  - VIRAL INFECTION [None]
  - VOMITING [None]
